FAERS Safety Report 22660855 (Version 1)
Quarter: 2023Q2

REPORT INFORMATION
  Report Type: Report from Study
  Country: HK (occurrence: HK)
  Receive Date: 20230630
  Receipt Date: 20230630
  Transmission Date: 20230722
  Serious: Yes (Other)
  Sender: FDA-Public Use
  Company Number: HK-SUN PHARMACEUTICAL INDUSTRIES LTD-2023RR-396318

PATIENT
  Age: 53 Year
  Sex: Female
  Weight: 34.5 kg

DRUGS (1)
  1. METFORMIN [Suspect]
     Active Substance: METFORMIN HYDROCHLORIDE
     Indication: Diabetes mellitus
     Dosage: 250 MILLIGRAM, BID
     Route: 065

REACTIONS (3)
  - Dyskinesia [Recovered/Resolved]
  - Somnolence [Recovered/Resolved]
  - Muscle twitching [Recovered/Resolved]
